FAERS Safety Report 6837782-5 (Version None)
Quarter: 2010Q3

REPORT INFORMATION
  Report Type: 
  Country: None (occurrence: None)
  Receive Date: 20100713
  Receipt Date: 20070520
  Transmission Date: 20110219
  Serious: No
  Sender: FDA-Public Use
  Company Number: US-PFIZER INC-2007040757

PATIENT
  Sex: Female
  Weight: 50.9 kg

DRUGS (10)
  1. CHANTIX [Suspect]
     Indication: SMOKING CESSATION THERAPY
     Dates: start: 20070509
  2. ATENOLOL [Concomitant]
  3. LEVOTHYROXINE [Concomitant]
  4. CRESTOR [Concomitant]
  5. OMEPRAZOLE [Concomitant]
  6. CLONAZEPAM [Concomitant]
  7. ACETYLSALICYLIC ACID [Concomitant]
  8. ERYTHROMYCIN [Concomitant]
     Dates: start: 20070401
  9. LAXATIVES [Concomitant]
  10. OXYGEN [Concomitant]

REACTIONS (2)
  - NAUSEA [None]
  - VOMITING [None]
